FAERS Safety Report 5299908-7 (Version None)
Quarter: 2007Q2

REPORT INFORMATION
  Report Type: 
  Country: None (occurrence: None)
  Receive Date: 20070410
  Receipt Date: 20070327
  Transmission Date: 20071010
  Serious: Yes (Hospitalization)
  Sender: FDA-Public Use
  Company Number: 238733

PATIENT
  Age: 49 Year
  Sex: Female

DRUGS (5)
  1. MABTHERA (RITUXIMAB) CONCENTRATE FOR SOLUTION FOR INFUSION [Suspect]
     Indication: B-CELL LYMPHOMA
     Dosage: 600 MG, UNK, INTRAVENOUS
     Route: 042
     Dates: start: 20070213, end: 20070301
  2. CYCLOPHOSPHAMIDE [Concomitant]
  3. DOXORUBICIN HCL [Concomitant]
  4. PREDNISONE TAB [Concomitant]
  5. VINCRISTINE [Concomitant]

REACTIONS (2)
  - ALANINE AMINOTRANSFERASE INCREASED [None]
  - ASPARTATE AMINOTRANSFERASE INCREASED [None]
